FAERS Safety Report 9895896 (Version 1)
Quarter: 2014Q1

REPORT INFORMATION
  Report Type: Spontaneous
  Country: US (occurrence: US)
  Receive Date: 20140213
  Receipt Date: 20140213
  Transmission Date: 20141002
  Serious: No
  Sender: FDA-Public Use
  Company Number: US-BRISTOL-MYERS SQUIBB COMPANY-17302175

PATIENT
  Age: 52 Year
  Sex: Male

DRUGS (8)
  1. ABATACEPT SUBQ INJECTION 125MG/ML [Suspect]
     Dosage: 1DF= 125MG/ML?4 PACK
  2. METHOTREXATE TABS [Concomitant]
  3. SYNTHROID [Concomitant]
     Dosage: TABS
  4. VITAMIN B COMPLEX [Concomitant]
     Dosage: CAPS
  5. ACETYLSALICYLIC ACID [Concomitant]
     Dosage: TABS EC
  6. VITAMIN C [Concomitant]
     Dosage: CAPS
  7. FOLIC ACID [Concomitant]
     Dosage: CAPS
  8. VITAMIN E [Concomitant]
     Dosage: BAR

REACTIONS (1)
  - Drug ineffective [Unknown]
